FAERS Safety Report 5848436-6 (Version None)
Quarter: 2008Q3

REPORT INFORMATION
  Report Type: 
  Country: None (occurrence: None)
  Receive Date: 20080815
  Receipt Date: 20080815
  Transmission Date: 20090109
  Serious: No
  Sender: FDA-Public Use
  Company Number: None

PATIENT
  Age: 46 Year
  Sex: Female
  Weight: 79.8 kg

DRUGS (2)
  1. KEPPRA [Suspect]
     Indication: HYPERTENSION
     Dosage: 500MG  1 AND 1/2 BID
     Dates: start: 20071031, end: 20080728
  2. KEPPRA [Suspect]
     Indication: MULTIPLE SCLEROSIS
     Dosage: 500MG  1 AND 1/2 BID
     Dates: start: 20071031, end: 20080728

REACTIONS (1)
  - SJOGREN'S SYNDROME [None]
